FAERS Safety Report 16784745 (Version 3)
Quarter: 2019Q4

REPORT INFORMATION
  Report Type: Spontaneous
  Country: FR (occurrence: FR)
  Receive Date: 20190909
  Receipt Date: 20191128
  Transmission Date: 20200122
  Serious: Yes (Hospitalization, Other)
  Sender: FDA-Public Use
  Company Number: PHHY2019FR000750

PATIENT
  Age: 46 Year
  Sex: Female

DRUGS (4)
  1. CYPROTERONE [Suspect]
     Active Substance: CYPROTERONE
     Indication: ANDROGENETIC ALOPECIA
     Dosage: 50 MG, DAILY
     Route: 048
  2. CYPROTERONE [Suspect]
     Active Substance: CYPROTERONE
     Indication: HORMONE REPLACEMENT THERAPY
  3. ESTRADIOL. [Suspect]
     Active Substance: ESTRADIOL
     Indication: ANDROGENETIC ALOPECIA
     Dosage: UNK
     Route: 065
  4. ESTRADIOL. [Suspect]
     Active Substance: ESTRADIOL
     Indication: HORMONE THERAPY

REACTIONS (3)
  - Ischaemic stroke [Recovered/Resolved]
  - Meningioma [Recovered/Resolved]
  - Paraesthesia [Recovered/Resolved]
